FAERS Safety Report 5320584-9 (Version None)
Quarter: 2007Q1

REPORT INFORMATION
  Report Type: 
  Country: None (occurrence: None)
  Receive Date: 20070209
  Receipt Date: 20061101
  Transmission Date: 20070707
  Serious: No
  Sender: FDA-Public Use
  Company Number: 200619011US

PATIENT
  Sex: Male

DRUGS (2)
  1. APIDRA [Suspect]
  2. INSULIN (HUMALOG /00030501/) [Concomitant]

REACTIONS (1)
  - DIZZINESS [None]
